FAERS Safety Report 5821142-X (Version None)
Quarter: 2008Q3

REPORT INFORMATION
  Report Type: 
  Country: None (occurrence: None)
  Receive Date: 20080724
  Receipt Date: 20080215
  Transmission Date: 20090109
  Serious: No
  Sender: FDA-Public Use
  Company Number: US-BAYER-200810694BCC

PATIENT
  Age: 43 Year
  Sex: Male
  Weight: 84 kg

DRUGS (1)
  1. ALEVE [Suspect]
     Indication: PYREXIA
     Dosage: AS USED: 440 MG  UNIT DOSE: 220 MG
     Route: 048
     Dates: start: 20080213

REACTIONS (2)
  - DIZZINESS [None]
  - RASH MACULAR [None]
